FAERS Safety Report 17049075 (Version 2)
Quarter: 2021Q3

REPORT INFORMATION
  Report Type: Spontaneous
  Country: CA (occurrence: CA)
  Receive Date: 20191119
  Receipt Date: 20210927
  Transmission Date: 20211014
  Serious: Yes (Hospitalization)
  Sender: FDA-Public Use
  Company Number: CA-009507513-1911CAN006301

PATIENT
  Age: 49 Year
  Sex: Male
  Weight: 90 kg

DRUGS (4)
  1. AMOXICILLIN;CLAVULANATE POTASSIUM [Concomitant]
     Active Substance: AMOXICILLIN\CLAVULANATE POTASSIUM
     Dosage: 875/125 MILLIGRAM, 2 EVERY 1
     Route: 065
     Dates: start: 20190216, end: 20190223
  2. SERTRALINE [Concomitant]
     Active Substance: SERTRALINE HYDROCHLORIDE
     Dosage: 100 MILLIGRAM, 1 EVERY 1
     Route: 048
  3. FRAGMIN [Concomitant]
     Active Substance: DALTEPARIN SODIUM
     Dosage: 5000 INTERNATIONAL UNIT, 1 EVERY 1 SINGLE DOSE PREFILLED SYRENGES
     Route: 058
     Dates: start: 20190206, end: 20190216
  4. CUBICIN [Suspect]
     Active Substance: DAPTOMYCIN
     Indication: STAPHYLOCOCCAL BACTERAEMIA
     Dosage: 700 MILLIGRAM, 1 EVERY 1 DAY (QD)
     Route: 042
     Dates: start: 20190207, end: 20190218

REACTIONS (2)
  - Blood creatine phosphokinase increased [Recovering/Resolving]
  - Pain in extremity [Recovering/Resolving]

NARRATIVE: CASE EVENT DATE: 20190215
